FAERS Safety Report 19228131 (Version 3)
Quarter: 2021Q2

REPORT INFORMATION
  Report Type: Spontaneous
  Country: CA (occurrence: CA)
  Receive Date: 20210506
  Receipt Date: 20210523
  Transmission Date: 20210717
  Serious: Yes (Other)
  Sender: FDA-Public Use
  Company Number: CA-TEVA-2021-CA-1907400

PATIENT
  Age: 74 Year
  Sex: Male

DRUGS (5)
  1. LEUCOVORIN. [Suspect]
     Active Substance: LEUCOVORIN
     Dosage: FOLFOX (FOLINIC ACID, FLUOROURACIL AND OXALIPLATIN (STRENGTH: 5 MG/ML), DOSAGE FORM: INJECTABLE SOLU
  2. OXALIPLATIN. [Suspect]
     Active Substance: OXALIPLATIN
     Dosage: LAST ADMINISTERED DATE BEFORE AE: 07?APR?2021
     Dates: end: 20210407
  3. OXALIPLATIN. [Suspect]
     Active Substance: OXALIPLATIN
     Dates: start: 20210324
  4. OXALIPLATIN. [Suspect]
     Active Substance: OXALIPLATIN
     Indication: COLORECTAL CANCER
     Dosage: FOLFOX (FOLINIC ACID, FLUOROURACIL AND OXALIPLATIN (STRENGTH: 5 MG/ML), DOSAGE FORM: INJECTABLE SOLU
     Dates: start: 20210311
  5. FLUOROURACIL. [Suspect]
     Active Substance: FLUOROURACIL
     Dosage: FOLFOX (FOLINIC ACID, FLUOROURACIL AND OXALIPLATIN (STRENGTH: 5 MG/ML), DOSAGE FORM: INJECTABLE SOLU

REACTIONS (1)
  - Amaurosis fugax [Recovered/Resolved]

NARRATIVE: CASE EVENT DATE: 20210407
